FAERS Safety Report 15487393 (Version 1)
Quarter: 2018Q4

REPORT INFORMATION
  Report Type: Report from Study
  Country: NL (occurrence: NL)
  Receive Date: 20181011
  Receipt Date: 20181011
  Transmission Date: 20190205
  Serious: Yes (Hospitalization)
  Sender: FDA-Public Use
  Company Number: NL-ROCHE-2193246

PATIENT
  Weight: 55.9 kg

DRUGS (20)
  1. ONDANSETRON [Concomitant]
     Active Substance: ONDANSETRON
     Route: 065
     Dates: start: 20171003
  2. LOPERAMIDE [Concomitant]
     Active Substance: LOPERAMIDE
     Route: 065
     Dates: start: 20171003
  3. COTRIMOXAZOLE [Concomitant]
     Active Substance: SULFAMETHOXAZOLE\TRIMETHOPRIM
     Indication: ANTIFUNGAL PROPHYLAXIS
     Route: 065
     Dates: start: 20171006
  4. ONDANSETRON [Concomitant]
     Active Substance: ONDANSETRON
     Indication: NAUSEA
     Route: 065
     Dates: start: 20171027
  5. IRINOTECAN [Suspect]
     Active Substance: IRINOTECAN
     Indication: NEUROBLASTOMA RECURRENT
     Dosage: ON DAYS 1 TO 5 OF A 3 WEEK CYCLE, FOR 6 CYCLES OR UNTIL PROGRESSION?DOSE LAST GIVEN: 88.6 MG, CURREN
     Route: 042
     Dates: start: 20171003, end: 20171028
  6. TEMOZOLOMIDE. [Suspect]
     Active Substance: TEMOZOLOMIDE
     Dosage: CURRENT CYCLE 7, DOSE LAST GIVEN: 165 MG.
     Route: 048
  7. GRANISETRON [Concomitant]
     Active Substance: GRANISETRON
     Indication: NAUSEA
     Route: 065
     Dates: start: 20171101
  8. LEVOTHYROXINE. [Concomitant]
     Active Substance: LEVOTHYROXINE
     Route: 065
     Dates: start: 20180207, end: 20180210
  9. APREPITANT. [Concomitant]
     Active Substance: APREPITANT
     Indication: NAUSEA
     Route: 065
     Dates: start: 20171017
  10. BEVACIZUMAB. [Suspect]
     Active Substance: BEVACIZUMAB
     Indication: NEUROBLASTOMA RECURRENT
     Dosage: ON DAY 1 OF A 3 WEEK CYCLE, FOR 6 CYCLES OR UNTIL PROGRESSION?DOSE LAST GIVEN: 960 MG, CURRENT CYCLE
     Route: 042
     Dates: start: 20171003, end: 20171024
  11. BEVACIZUMAB. [Suspect]
     Active Substance: BEVACIZUMAB
     Dosage: CURRENT CYCLE 7?DOSE LAST GIVEN: 846 MG
     Route: 042
     Dates: start: 20171003, end: 20180219
  12. LOPERAMIDE [Concomitant]
     Active Substance: LOPERAMIDE
     Indication: DIARRHOEA
     Route: 065
     Dates: start: 20171016
  13. THIAMAZOLE [Concomitant]
     Active Substance: METHIMAZOLE
     Route: 065
     Dates: start: 20180207, end: 20180210
  14. IRINOTECAN [Suspect]
     Active Substance: IRINOTECAN
     Dosage: CURRENT CYCLE 7, DOSE LAST GIVEN: 83 MG
     Route: 042
     Dates: start: 20171003, end: 20180223
  15. CEFIXIM [Concomitant]
     Active Substance: CEFIXIME
     Indication: BACTERIAL INFECTION
     Route: 065
     Dates: start: 20171022, end: 20171029
  16. TEMOZOLOMIDE. [Suspect]
     Active Substance: TEMOZOLOMIDE
     Dosage: CURRENT CYCLE 6, DOSE LAST GIVEN: 175 MG.?DATE LAST ADMINISTERED: 20/JAN/2018
     Route: 048
     Dates: start: 20171003, end: 20180120
  17. COTRIMOXAZOLE [Concomitant]
     Active Substance: SULFAMETHOXAZOLE\TRIMETHOPRIM
     Indication: BACTERIAL INFECTION
     Dosage: 3 DAYS IN A ROW AND 4 DAYS REST
     Route: 065
     Dates: start: 20171016
  18. MACROGOL [Concomitant]
     Active Substance: POLYETHYLENE GLYCOLS
     Indication: CONSTIPATION
     Dosage: DISSOLVING POWDER FOR DRINK
     Route: 065
     Dates: start: 20171025
  19. POTASSIUM IODIDE. [Concomitant]
     Active Substance: POTASSIUM IODIDE
     Route: 065
     Dates: start: 20180208, end: 20180210
  20. TEMOZOLOMIDE. [Suspect]
     Active Substance: TEMOZOLOMIDE
     Indication: NEUROBLASTOMA RECURRENT
     Dosage: DAYS 1 TO 5 OF A 3 WEEK CYCLE, FOR 6 CYCLES OR UNTIL PROGRESSION?DOSE LAST GIVEN: 177 MG, CURRENT CY
     Route: 048
     Dates: start: 20171003, end: 20171028

REACTIONS (2)
  - Dehydration [Not Recovered/Not Resolved]
  - Pyrexia [Not Recovered/Not Resolved]

NARRATIVE: CASE EVENT DATE: 20171103
